FAERS Safety Report 17287063 (Version 1)
Quarter: 2020Q1

REPORT INFORMATION
  Report Type: Spontaneous
  Country: US (occurrence: US)
  Receive Date: 20191230
  Receipt Date: 20191230
  Transmission Date: 20200409
  Serious: No
  Sender: FDA-Public Use
  Company Number: None

PATIENT
  Age: 79 Year
  Sex: Male
  Weight: 81.65 kg

DRUGS (11)
  1. CO10 [Concomitant]
  2. LOSARTAN-HCTZ [Suspect]
     Active Substance: HYDROCHLOROTHIAZIDE\LOSARTAN
     Indication: HYPERTENSION
     Dosage: ?          QUANTITY:1 DF DOSAGE FORM;?
     Route: 048
  3. AMLODIPINE BESYLATE. [Concomitant]
     Active Substance: AMLODIPINE BESYLATE
  4. FENOFIBRATE. [Concomitant]
     Active Substance: FENOFIBRATE
  5. CULTURELLE PROBIOTICS [Concomitant]
  6. BABY ASPIRIN [Concomitant]
     Active Substance: ASPIRIN
  7. CENTRUM SILVER [Concomitant]
     Active Substance: MINERALS\VITAMINS
  8. METOPROLOL. [Concomitant]
     Active Substance: METOPROLOL
  9. FAMOTIDINE. [Concomitant]
     Active Substance: FAMOTIDINE
  10. MUCINEX DM MAX MAXIMUM STRENGTH [Suspect]
     Active Substance: DEXTROMETHORPHAN HYDROBROMIDE\GUAIFENESIN
     Indication: PULMONARY CONGESTION
     Dosage: ?          QUANTITY:1 DF DOSAGE FORM;?
     Route: 048
  11. METAMUCIL [Concomitant]
     Active Substance: PLANTAGO SEED

REACTIONS (3)
  - Constipation [None]
  - Abdominal pain upper [None]
  - Therapeutic product effect decreased [None]

NARRATIVE: CASE EVENT DATE: 20190614
